FAERS Safety Report 9286904 (Version 2)
Quarter: 2013Q4

REPORT INFORMATION
  Report Type: Spontaneous
  Country: US (occurrence: US)
  Receive Date: 20130513
  Receipt Date: 20131030
  Transmission Date: 20140711
  Serious: Yes (Hospitalization)
  Sender: FDA-Public Use
  Company Number: US-B.I. PHARMACEUTICALS,INC./RIDGEFIELD-2013-BI-13053BP

PATIENT
  Age: 61 Year
  Sex: Male
  Weight: 104.33 kg

DRUGS (6)
  1. PRADAXA [Suspect]
     Dosage: 300 MG
     Dates: start: 20111007, end: 20111031
  2. ALTACE [Concomitant]
     Dosage: 10 MG
  3. TOPROL XL [Concomitant]
     Dosage: 200 MG
     Route: 048
  4. ASPIRIN [Concomitant]
     Dosage: 81 MG
  5. NORVASC [Concomitant]
     Dosage: 5 MG
  6. ZOCOR [Concomitant]
     Dosage: 20 MG

REACTIONS (3)
  - Anaemia [Unknown]
  - Gastrointestinal haemorrhage [Unknown]
  - Ulcer haemorrhage [Unknown]
